FAERS Safety Report 8117051-6 (Version None)
Quarter: 2012Q1

REPORT INFORMATION
  Report Type: 
  Country: None (occurrence: None)
  Receive Date: 20120206
  Receipt Date: 20120202
  Transmission Date: 20120608
  Serious: Yes (Other)
  Sender: FDA-Public Use
  Company Number: US-BAYER-2012-011154

PATIENT
  Sex: Male

DRUGS (9)
  1. GLIPIZIDE [Concomitant]
  2. ALEVE (CAPLET) [Suspect]
     Indication: ANALGESIC THERAPY
     Route: 048
  3. LIPITOR [Concomitant]
  4. METOPROLOL [Concomitant]
  5. POTASSIUM [Concomitant]
  6. OMEPRAZOLE [Concomitant]
  7. AMILORIDE HYDROCHLORIDE [Concomitant]
  8. FUROSEMIDE [Concomitant]
  9. ASPIRIN [Suspect]

REACTIONS (1)
  - RECTAL HAEMORRHAGE [None]
